FAERS Safety Report 24733341 (Version 1)
Quarter: 2024Q4

REPORT INFORMATION
  Report Type: Spontaneous
  Country: BY (occurrence: BY)
  Receive Date: 20241213
  Receipt Date: 20241213
  Transmission Date: 20250115
  Serious: Yes (Hospitalization, Other)
  Sender: MYLAN
  Company Number: BY-MYLANLABS-2024M1112236

PATIENT
  Age: 36 Year
  Sex: Female

DRUGS (4)
  1. ARIXTRA [Suspect]
     Active Substance: FONDAPARINUX SODIUM
     Indication: Congenital coronary artery malformation
     Dosage: 2.5 MILLIGRAM, QD
     Route: 058
     Dates: start: 20231201, end: 20231211
  2. ASPIRIN [Suspect]
     Active Substance: ASPIRIN
     Indication: Congenital coronary artery malformation
     Dosage: 75 MILLIGRAM, QD (1 TABLET IN THE EVENING)
     Route: 065
     Dates: start: 20231201, end: 20231211
  3. METOPROLOL [Suspect]
     Active Substance: METOPROLOL
     Indication: Congenital coronary artery malformation
     Dosage: 25 MILLIGRAM, TID (1 TABLET THREE TIMES A DAY)
     Route: 065
     Dates: start: 20231201, end: 20231211
  4. CLOPIDOGREL [Suspect]
     Active Substance: CLOPIDOGREL BISULFATE
     Indication: Congenital coronary artery malformation
     Dosage: 75 MILLIGRAM, QD ( 1 TABLET IN MORNING)
     Route: 065
     Dates: start: 20231201, end: 20231211

REACTIONS (4)
  - Exercise tolerance decreased [Unknown]
  - Angina pectoris [Unknown]
  - Syncope [Unknown]
  - Off label use [Unknown]

NARRATIVE: CASE EVENT DATE: 20231201
